FAERS Safety Report 20037673 (Version 2)
Quarter: 2021Q4

REPORT INFORMATION
  Report Type: Spontaneous
  Country: CN (occurrence: CN)
  Receive Date: 20211105
  Receipt Date: 20211115
  Transmission Date: 20220303
  Serious: Yes (Hospitalization)
  Sender: FDA-Public Use
  Company Number: CN-BAYER-2021A242801

PATIENT
  Age: 44 Year
  Sex: Male

DRUGS (1)
  1. MOXIFLOXACIN [Suspect]
     Active Substance: MOXIFLOXACIN
     Indication: Pneumonia
     Dosage: 0.4 G, QD
     Route: 048
     Dates: start: 20200602, end: 20200605

REACTIONS (2)
  - Tubulointerstitial nephritis [Recovering/Resolving]
  - Nephropathy toxic [Recovering/Resolving]

NARRATIVE: CASE EVENT DATE: 20200605
